FAERS Safety Report 5092235-2 (Version None)
Quarter: 2006Q3

REPORT INFORMATION
  Report Type: 
  Country: None (occurrence: None)
  Receive Date: 20060828
  Receipt Date: 20060828
  Transmission Date: 20061208
  Serious: Yes (Life-Threatening, Hospitalization)
  Sender: FDA-Public Use
  Company Number: None

PATIENT
  Age: 67 Year
  Sex: Male
  Weight: 107.9561 kg

DRUGS (1)
  1. CIPRO [Suspect]
     Dosage: 200/100ML

REACTIONS (2)
  - ANGIONEUROTIC OEDEMA [None]
  - DRUG THERAPY CHANGED [None]
